FAERS Safety Report 20998273 (Version 1)
Quarter: 2022Q2

REPORT INFORMATION
  Report Type: Spontaneous
  Country: US (occurrence: None)
  Receive Date: 20220622
  Receipt Date: 20220622
  Transmission Date: 20220721
  Serious: Yes (Other)
  Sender: FDA-Public Use
  Company Number: None

PATIENT
  Age: 36 Year
  Sex: Female
  Weight: 132.3 kg

DRUGS (1)
  1. MIRTAZAPINE [Suspect]
     Active Substance: MIRTAZAPINE
     Indication: Insomnia
     Dosage: FREQUENCY : AT BEDTIME;?
     Route: 048
     Dates: end: 20220621

REACTIONS (7)
  - Palpitations [None]
  - Dyspnoea [None]
  - Tinnitus [None]
  - Loss of consciousness [None]
  - Fall [None]
  - Skin laceration [None]
  - Deafness [None]

NARRATIVE: CASE EVENT DATE: 20220621
